FAERS Safety Report 5563789-4 (Version None)
Quarter: 2007Q4

REPORT INFORMATION
  Report Type: 
  Country: None (occurrence: None)
  Receive Date: 20071217
  Receipt Date: 20070808
  Transmission Date: 20080405
  Serious: No
  Sender: FDA-Public Use
  Company Number: US-ASTRAZENECA-2007UW19133

PATIENT
  Age: 73 Year
  Sex: Male
  Weight: 67.1 kg

DRUGS (3)
  1. CRESTOR [Suspect]
     Indication: BLOOD CHOLESTEROL INCREASED
     Route: 048
  2. CRESTOR [Suspect]
     Route: 048
  3. CARDIZEM [Concomitant]
     Indication: ATRIAL FIBRILLATION

REACTIONS (3)
  - ARTHRALGIA [None]
  - BACK PAIN [None]
  - POLLAKIURIA [None]
